FAERS Safety Report 14628085 (Version 1)
Quarter: 2018Q1

REPORT INFORMATION
  Report Type: Spontaneous
  Country: FR (occurrence: US)
  Receive Date: 20180312
  Receipt Date: 20180312
  Transmission Date: 20180509
  Serious: No
  Sender: FDA-Public Use
  Company Number: US-ALLERGAN-1748503US

PATIENT
  Age: 83 Year
  Sex: Female

DRUGS (6)
  1. AMLODIPINE [Concomitant]
     Active Substance: AMLODIPINE BESYLATE
     Indication: BLOOD PRESSURE MEASUREMENT
     Dosage: 2.5 MG, UNK
     Route: 048
  2. PRESERVISION AREDS [Concomitant]
     Active Substance: MINERALS\VITAMINS
     Indication: SUPPLEMENTATION THERAPY
     Dosage: 1 TABLET IN THE MORNING AND EVENING
     Dates: start: 2017
  3. ESTRACE [Suspect]
     Active Substance: ESTRADIOL
     Indication: MEDICAL DEVICE DISCOMFORT
     Dosage: TINY BIT TWICE A WEEK
     Route: 067
     Dates: start: 2017
  4. PREMARIN [Suspect]
     Active Substance: ESTROGENS, CONJUGATED
     Indication: MEDICAL DEVICE DISCOMFORT
     Dosage: TINY BIT TWICE A WEEK
     Route: 067
     Dates: start: 2016, end: 2016
  5. LUCENTIS [Concomitant]
     Active Substance: RANIBIZUMAB
     Indication: MACULAR DEGENERATION
     Dosage: UNK
     Dates: start: 201703
  6. LOSARTAN. [Concomitant]
     Active Substance: LOSARTAN
     Indication: BLOOD PRESSURE MEASUREMENT
     Dosage: 12.5 MG, QD
     Route: 048

REACTIONS (3)
  - Macular degeneration [Unknown]
  - Incorrect dose administered [Unknown]
  - Off label use [Unknown]

NARRATIVE: CASE EVENT DATE: 20170719
